FAERS Safety Report 5984790-2 (Version None)
Quarter: 2008Q4

REPORT INFORMATION
  Report Type: 
  Country: None (occurrence: None)
  Receive Date: 20081202
  Receipt Date: 20081021
  Transmission Date: 20090506
  Serious: Yes (Life-Threatening, Hospitalization)
  Sender: FDA-Public Use
  Company Number: 2008EU002236

PATIENT
  Age: 27 Year
  Sex: Female

DRUGS (3)
  1. PROTOPIC [Suspect]
     Indication: DERMATITIS ATOPIC
     Dosage: 0.1 % BID, TOPICAL, 0.1 %, UID/QD, TOPICAL
     Route: 061
     Dates: start: 20071101, end: 20071226
  2. PROTOPIC [Suspect]
     Indication: DERMATITIS ATOPIC
     Dosage: 0.1 % BID, TOPICAL, 0.1 %, UID/QD, TOPICAL
     Route: 061
     Dates: start: 20071227
  3. IBUPROFEN [Suspect]
     Dosage: D, ORAL
     Route: 048
     Dates: start: 20080222, end: 20080224

REACTIONS (12)
  - BETA HAEMOLYTIC STREPTOCOCCAL INFECTION [None]
  - CHOLESTASIS [None]
  - COAGULOPATHY [None]
  - CYTOLYTIC HEPATITIS [None]
  - HEPATOMEGALY [None]
  - HYPOKALAEMIA [None]
  - NECROTISING FASCIITIS [None]
  - PLEURAL EFFUSION [None]
  - RENAL FAILURE [None]
  - SCAR [None]
  - SEPTIC SHOCK [None]
  - STAPHYLOCOCCAL INFECTION [None]
